FAERS Safety Report 21827282 (Version 1)
Quarter: 2023Q1

REPORT INFORMATION
  Report Type: Spontaneous
  Country: FR (occurrence: None)
  Receive Date: 20230106
  Receipt Date: 20230106
  Transmission Date: 20230418
  Serious: Yes (Death, Other)
  Sender: FDA-Public Use
  Company Number: FR-VistaPharm, Inc.-VER202212-001044

PATIENT
  Age: 13 Year
  Sex: Female

DRUGS (2)
  1. METOCLOPRAMIDE [Suspect]
     Active Substance: METOCLOPRAMIDE
     Indication: Product used for unknown indication
     Dosage: UNKNOWN
     Route: 065
  2. SODIUM NITRITE [Suspect]
     Active Substance: SODIUM NITRITE
     Indication: Product used for unknown indication
     Dosage: UNKNOWN
     Route: 065

REACTIONS (5)
  - Anoxia [Fatal]
  - Pulmonary haemorrhage [Fatal]
  - Cardiac failure acute [Fatal]
  - Completed suicide [Fatal]
  - Toxicity to various agents [Fatal]
